FAERS Safety Report 17401975 (Version 1)
Quarter: 2020Q1

REPORT INFORMATION
  Report Type: Spontaneous
  Country: US (occurrence: US)
  Receive Date: 20200127
  Receipt Date: 20200127
  Transmission Date: 20200409
  Serious: Yes (Hospitalization)
  Sender: FDA-Public Use
  Company Number: None

PATIENT
  Sex: Female

DRUGS (6)
  1. AMITRIPTYLINE [Concomitant]
     Active Substance: AMITRIPTYLINE
  2. IBUPROFEN. [Concomitant]
     Active Substance: IBUPROFEN
  3. DIAZEPAM. [Concomitant]
     Active Substance: DIAZEPAM
  4. ENBREL [Concomitant]
     Active Substance: ETANERCEPT
  5. METHOTREXATE. [Concomitant]
     Active Substance: METHOTREXATE
  6. HUMIRA [Suspect]
     Active Substance: ADALIMUMAB
     Dosage: ?          OTHER FREQUENCY:Q2WKS ;?
     Route: 058
     Dates: start: 20190103

REACTIONS (4)
  - Condition aggravated [None]
  - Infection [None]
  - Rash [None]
  - Loss of personal independence in daily activities [None]
